FAERS Safety Report 17578769 (Version 1)
Quarter: 2020Q1

REPORT INFORMATION
  Report Type: Report from Study
  Country: US (occurrence: US)
  Receive Date: 20200325
  Receipt Date: 20200325
  Transmission Date: 20200409
  Serious: Yes (Hospitalization)
  Sender: FDA-Public Use
  Company Number: US-SUN PHARMACEUTICAL INDUSTRIES LTD-2020R1-240989

PATIENT
  Age: 50 Year
  Sex: Female
  Weight: 61.2 kg

DRUGS (2)
  1. BLINDED TILDRAKIZUMAB [Suspect]
     Active Substance: TILDRAKIZUMAB
     Indication: PSORIASIS
     Route: 058
  2. PLACEBO [Suspect]
     Active Substance: UNSPECIFIED INGREDIENT
     Indication: PSORIASIS
     Route: 058

REACTIONS (1)
  - Sciatica [Recovered/Resolved]

NARRATIVE: CASE EVENT DATE: 20200307
